FAERS Safety Report 14448835 (Version 1)
Quarter: 2018Q1

REPORT INFORMATION
  Report Type: Spontaneous
  Country: DE (occurrence: DE)
  Receive Date: 20180126
  Receipt Date: 20180126
  Transmission Date: 20180509
  Serious: Yes (Hospitalization)
  Sender: FDA-Public Use
  Company Number: DE-TEVA-2018-DE-849306

PATIENT
  Age: 64 Year
  Sex: Female
  Weight: 100 kg

DRUGS (2)
  1. PACLITAXEL. [Suspect]
     Active Substance: PACLITAXEL
     Indication: PRODUCT USED FOR UNKNOWN INDICATION
     Route: 065
  2. CARBOPLATIN. [Suspect]
     Active Substance: CARBOPLATIN
     Indication: PRODUCT USED FOR UNKNOWN INDICATION
     Route: 065

REACTIONS (5)
  - Feeling hot [Unknown]
  - Hyperhidrosis [Unknown]
  - Nausea [Unknown]
  - Flushing [Unknown]
  - Micturition urgency [Unknown]

NARRATIVE: CASE EVENT DATE: 20171012
